FAERS Safety Report 9424314 (Version 1)
Quarter: 2013Q3

REPORT INFORMATION
  Report Type: Spontaneous
  Country: IT (occurrence: IT)
  Receive Date: 20130724
  Receipt Date: 20130724
  Transmission Date: 20140515
  Serious: Yes (Hospitalization, Other)
  Sender: FDA-Public Use
  Company Number: VAL_02651_2013

PATIENT
  Age: 44 Year
  Sex: Female

DRUGS (1)
  1. METHYLERGOMETRINE [Suspect]
     Indication: HAEMORRHAGE

REACTIONS (6)
  - Arteriospasm coronary [None]
  - Nausea [None]
  - Vomiting [None]
  - Ventricular tachycardia [None]
  - Left ventricular dysfunction [None]
  - Coronary artery stenosis [None]
